FAERS Safety Report 5476822-5 (Version None)
Quarter: 2007Q4

REPORT INFORMATION
  Report Type: 
  Country: None (occurrence: None)
  Receive Date: 20071004
  Receipt Date: 20071001
  Transmission Date: 20080405
  Serious: Yes (Life-Threatening, Hospitalization, Other)
  Sender: FDA-Public Use
  Company Number: HQWYE918606JUL07

PATIENT
  Sex: Male

DRUGS (14)
  1. AMIODARONE HCL [Suspect]
     Indication: ATRIAL FIBRILLATION
     Route: 048
     Dates: start: 19990301, end: 20070530
  2. AMIODARONE HCL [Suspect]
     Indication: CONGESTIVE CARDIOMYOPATHY
     Route: 048
     Dates: start: 20070531, end: 20070621
  3. AMIODARONE HCL [Suspect]
     Indication: VENTRICULAR TACHYCARDIA
  4. RENIVACE [Concomitant]
     Indication: PROPHYLAXIS
     Route: 048
     Dates: start: 20070101
  5. ARTIST [Concomitant]
     Indication: PROPHYLAXIS
     Route: 048
  6. WARFARIN SODIUM [Concomitant]
     Indication: PROPHYLAXIS
     Route: 048
  7. WARFARIN SODIUM [Concomitant]
     Indication: THROMBOSIS
  8. TRICHLORMETHIAZIDE [Concomitant]
     Indication: POLYURIA
     Route: 048
     Dates: end: 20070608
  9. TRICHLORMETHIAZIDE [Concomitant]
     Route: 048
     Dates: start: 20070614
  10. LASIX [Concomitant]
     Indication: POLYURIA
     Route: 048
     Dates: end: 20070606
  11. LASIX [Concomitant]
     Route: 048
     Dates: start: 20070614
  12. ACARDI [Concomitant]
     Route: 048
  13. DIGOXIN [Concomitant]
     Route: 048
     Dates: start: 20070101
  14. ALDACTONE [Concomitant]
     Indication: POLYURIA
     Route: 048

REACTIONS (2)
  - INAPPROPRIATE ANTIDIURETIC HORMONE SECRETION [None]
  - INCORRECT DOSE ADMINISTERED [None]
